FAERS Safety Report 8544046 (Version 5)
Quarter: 2012Q4

REPORT INFORMATION
  Report Type: Report from Study
  Country: JP (occurrence: JP)
  Receive Date: 20120503
  Receipt Date: 20121228
  Transmission Date: 20130627
  Serious: Yes (Life-Threatening, Hospitalization, Other)
  Sender: FDA-Public Use
  Company Number: JP-VERTEX PHARMACEUTICALS INC.-AE-2012-006061

PATIENT
  Age: 64 Year
  Sex: Male

DRUGS (27)
  1. VX-950 (TELAPREVIR) [Suspect]
     Indication: CHRONIC HEPATITIS C
     Dosage: 2250 mg, qd
     Route: 048
     Dates: start: 20120410, end: 20120416
  2. PEGINTRON                          /01543001/ [Suspect]
     Indication: CHRONIC HEPATITIS C
     Dosage: 1.5 ?g/kg, qw
     Route: 058
     Dates: start: 20120410, end: 20120416
  3. REBETOL [Suspect]
     Indication: CHRONIC HEPATITIS C
     Dosage: 800 mg, qd
     Route: 048
     Dates: start: 20120410, end: 20120412
  4. REBETOL [Suspect]
     Dosage: 600 mg, qd
     Route: 048
     Dates: start: 20120413, end: 20120416
  5. ADALAT [Concomitant]
     Dosage: 60 mg, qd
     Route: 048
     Dates: end: 20120412
  6. ADALAT [Concomitant]
     Dosage: 60 mg, qd
     Route: 048
     Dates: start: 20120417
  7. OLMETEC [Concomitant]
     Dosage: 40 mg, qd
     Route: 048
     Dates: end: 20120412
  8. OLMETEC [Concomitant]
     Dosage: 40 mg, qd
     Route: 048
     Dates: start: 20120421
  9. CARDENALIN [Concomitant]
     Dosage: 1 mg, qd
     Route: 048
     Dates: end: 20120412
  10. CARDENALIN [Concomitant]
     Dosage: 1 mg, qd
     Route: 048
     Dates: start: 20120424
  11. FLUITRAN [Concomitant]
     Dosage: 1 mg, qd
     Route: 048
     Dates: end: 20120412
  12. FLUITRAN [Concomitant]
     Dosage: 1 mg, qd
     Route: 048
     Dates: start: 20120424
  13. NESINA [Concomitant]
     Dosage: 25 mg, qd
     Route: 048
     Dates: end: 20120412
  14. NESINA [Concomitant]
     Dosage: 25 mg, qd
     Route: 048
     Dates: start: 20120424
  15. AMARYL [Concomitant]
     Dosage: 0.5 mg, qd
     Route: 048
     Dates: end: 20120412
  16. AMARYL [Concomitant]
     Dosage: 0.5 mg, qd
     Route: 048
     Dates: start: 20120424
  17. METGLUCO [Concomitant]
     Dosage: 1500 mg, qd
     Route: 048
     Dates: end: 20120412
  18. METGLUCO [Concomitant]
     Dosage: 1500 mg, qd
     Route: 048
     Dates: start: 20120424
  19. KINEDAK [Concomitant]
     Dosage: 150 mg, qd
     Route: 048
  20. LENDORMIN DAINIPPO [Concomitant]
     Dosage: 0.25 mg, qd
     Route: 048
  21. ROHYPNOL [Concomitant]
     Dosage: 1 mg, qd
     Route: 048
     Dates: start: 20120418
  22. URSO                               /00465701/ [Concomitant]
     Dosage: 600 mg, qd
     Route: 048
     Dates: start: 20120424
  23. METHYLCOBAL [Concomitant]
     Dosage: 1500 mg, qd
     Route: 048
     Dates: start: 20120424
  24. JUVELA N [Concomitant]
     Dosage: 600 mg, qd
     Route: 048
     Dates: start: 20120424
  25. LYRICA [Concomitant]
     Dosage: 25 mg, qd
     Route: 048
     Dates: start: 20120531, end: 20120614
  26. GLYCYRON                           /00466401/ [Concomitant]
     Dosage: 6 DF, qd
     Route: 048
     Dates: start: 20120614, end: 20120704
  27. LOXONIN [Concomitant]
     Dosage: 120 mg, qd
     Route: 048

REACTIONS (5)
  - Renal impairment [Recovered/Resolved]
  - General physical health deterioration [Recovered/Resolved]
  - Dizziness [Recovered/Resolved]
  - Vomiting [Recovered/Resolved]
  - Nausea [Recovered/Resolved]
